FAERS Safety Report 6590407-9 (Version None)
Quarter: 2010Q1

REPORT INFORMATION
  Report Type: 
  Country: None (occurrence: None)
  Receive Date: 20100203
  Receipt Date: 20091001
  Transmission Date: 20100710
  Serious: No
  Sender: FDA-Public Use
  Company Number: 2009-00644

PATIENT
  Sex: Female

DRUGS (1)
  1. ZICAM ORAL PRODUCTS [Suspect]
     Dosage: QD FOR 1 DAY / 1 DOSE
     Dates: start: 20090927, end: 20090927

REACTIONS (3)
  - AGEUSIA [None]
  - HYPOAESTHESIA ORAL [None]
  - TONGUE COATED [None]
